FAERS Safety Report 7698751-9 (Version None)
Quarter: 2011Q3

REPORT INFORMATION
  Report Type: 
  Country: None (occurrence: None)
  Receive Date: 20110818
  Receipt Date: 20110818
  Transmission Date: 20111222
  Serious: Yes (Other)
  Sender: FDA-Public Use
  Company Number: None

PATIENT
  Age: 20 Year
  Sex: Female
  Weight: 57.6068 kg

DRUGS (4)
  1. VENLAFAXINE HCL EXTENDED-RELEASE [Suspect]
     Indication: PANIC DISORDER
     Dosage: 150 MG DAILY ORAL
     Route: 048
     Dates: start: 20110708
  2. VENLAFAXINE HCL EXTENDED-RELEASE [Suspect]
     Indication: POST-TRAUMATIC STRESS DISORDER
     Dosage: 150 MG DAILY ORAL
     Route: 048
     Dates: start: 20110708
  3. VENLAFAXINE HCL EXTENDED-RELEASE [Suspect]
     Indication: PANIC DISORDER
     Dosage: 150 MG DAILY ORAL
     Route: 048
     Dates: start: 20101020
  4. VENLAFAXINE HCL EXTENDED-RELEASE [Suspect]
     Indication: POST-TRAUMATIC STRESS DISORDER
     Dosage: 150 MG DAILY ORAL
     Route: 048
     Dates: start: 20101020

REACTIONS (4)
  - POISONING [None]
  - FATIGUE [None]
  - ROAD TRAFFIC ACCIDENT [None]
  - PRODUCT QUALITY ISSUE [None]
